FAERS Safety Report 4286169-0 (Version None)
Quarter: 2004Q1

REPORT INFORMATION
  Report Type: 
  Country: None (occurrence: None)
  Receive Date: 20040205
  Receipt Date: 20020514
  Transmission Date: 20041129
  Serious: Yes (Hospitalization)
  Sender: FDA-Public Use
  Company Number: PHHO2002NO03755

PATIENT
  Age: 80 Year
  Sex: Female

DRUGS (5)
  1. VALSARTAN +/-HCTZ VS AMLODIPINE +/-HCTZ [Suspect]
     Indication: ESSENTIAL HYPERTENSION
     Dosage: LEVEL 1
     Route: 048
     Dates: start: 19990127
  2. VALSARTAN +/-HCTZ VS AMLODIPINE +/-HCTZ [Suspect]
     Dosage: LEVEL 5
     Route: 048
  3. PHYSIOTENS [Concomitant]
     Indication: ESSENTIAL HYPERTENSION
     Dosage: .4 MG, UNK
     Route: 048
     Dates: start: 19991110
  4. CARDURAN [Concomitant]
     Indication: ESSENTIAL HYPERTENSION
     Dosage: 8 MG, UNK
     Route: 048
     Dates: start: 19940228, end: 20020513
  5. ESIDRIX [Suspect]
     Indication: ESSENTIAL HYPERTENSION
     Dosage: 25 MG, LEVEL 5
     Route: 048

REACTIONS (7)
  - ASTHENIA [None]
  - DECREASED APPETITE [None]
  - DEHYDRATION [None]
  - DIZZINESS [None]
  - HYPOTENSION [None]
  - SYNCOPE [None]
  - URINARY TRACT INFECTION [None]
